FAERS Safety Report 6190249-2 (Version None)
Quarter: 2009Q2

REPORT INFORMATION
  Report Type: 
  Country: None (occurrence: None)
  Receive Date: 20090514
  Receipt Date: 20090428
  Transmission Date: 20091009
  Serious: Yes (Other)
  Sender: FDA-Public Use
  Company Number: US-PFIZER INC-2009205597

PATIENT
  Sex: Male

DRUGS (1)
  1. VIAGRA [Suspect]
     Dosage: 150 MG, UNK

REACTIONS (3)
  - CARDIAC OPERATION [None]
  - INTENTIONAL DRUG MISUSE [None]
  - VASCULAR GRAFT [None]
